FAERS Safety Report 14969339 (Version 1)
Quarter: 2018Q2

REPORT INFORMATION
  Report Type: Spontaneous
  Country: CH (occurrence: CH)
  Receive Date: 20180604
  Receipt Date: 20180604
  Transmission Date: 20180711
  Serious: Yes (Other)
  Sender: FDA-Public Use
  Company Number: CH-PFIZER INC-2018222089

PATIENT
  Age: 60 Year
  Sex: Male

DRUGS (3)
  1. VORICONAZOLE. [Suspect]
     Active Substance: VORICONAZOLE
     Indication: BRONCHOPULMONARY ASPERGILLOSIS
     Dosage: UNK
     Dates: start: 20160727, end: 20161003
  2. POSACONAZOLE [Suspect]
     Active Substance: POSACONAZOLE
     Indication: BRONCHOPULMONARY ASPERGILLOSIS
     Dosage: UNK
     Dates: start: 20161003, end: 201610
  3. AMPHOTERICIN B. [Suspect]
     Active Substance: AMPHOTERICIN B
     Indication: BRONCHOPULMONARY ASPERGILLOSIS
     Dosage: UNK
     Dates: start: 201610

REACTIONS (8)
  - Disease recurrence [Not Recovered/Not Resolved]
  - Neurological decompensation [Unknown]
  - Respiratory failure [Unknown]
  - Escherichia infection [Unknown]
  - Monoparesis [Unknown]
  - Renal impairment [Unknown]
  - Septic shock [Unknown]
  - Mucormycosis [Unknown]

NARRATIVE: CASE EVENT DATE: 2016
